FAERS Safety Report 4871291-8 (Version None)
Quarter: 2005Q4

REPORT INFORMATION
  Report Type: 
  Country: None (occurrence: None)
  Receive Date: 20051229
  Receipt Date: 20051213
  Transmission Date: 20060501
  Serious: Yes (Life-Threatening, Hospitalization)
  Sender: FDA-Public Use
  Company Number: 2005-DE-05460GD

PATIENT
  Age: 8 Month
  Weight: 3.7 kg

DRUGS (1)
  1. CODEINE PHOSPHATE AND ACETAMINOPHEN [Suspect]
     Indication: PYREXIA
     Dosage: 2 ML, 4.8 MG OF CODEINE, PO
     Route: 048

REACTIONS (8)
  - APNOEA [None]
  - CYANOSIS [None]
  - DEPRESSED LEVEL OF CONSCIOUSNESS [None]
  - HYPOTONIA [None]
  - MENTAL STATUS CHANGES [None]
  - PNEUMONIA [None]
  - RESPIRATORY DISTRESS [None]
  - WRONG DRUG ADMINISTERED [None]
